FAERS Safety Report 19094084 (Version 1)
Quarter: 2021Q2

REPORT INFORMATION
  Report Type: Spontaneous
  Country: JP (occurrence: JP)
  Receive Date: 20210405
  Receipt Date: 20210405
  Transmission Date: 20210717
  Serious: Yes (Death, Hospitalization, Other)
  Sender: FDA-Public Use
  Company Number: JP-JAZZ-2021-JP-002875

PATIENT
  Age: 63 Year
  Sex: Female
  Weight: 38 kg

DRUGS (1)
  1. DEFITELIO [Suspect]
     Active Substance: DEFIBROTIDE SODIUM
     Indication: VENOOCCLUSIVE LIVER DISEASE
     Dosage: 25 MILLIGRAM/KILOGRAM DAILY
     Route: 042
     Dates: start: 20210209, end: 20210210

REACTIONS (3)
  - Melaena [Fatal]
  - Enterocolitis [Unknown]
  - Septic shock [Unknown]

NARRATIVE: CASE EVENT DATE: 20210210
